FAERS Safety Report 14755385 (Version 1)
Quarter: 2018Q2

REPORT INFORMATION
  Report Type: Spontaneous
  Country: US (occurrence: US)
  Receive Date: 20180413
  Receipt Date: 20180413
  Transmission Date: 20180711
  Serious: No
  Sender: FDA-Public Use
  Company Number: US-BION-006258

PATIENT
  Sex: Male
  Weight: 104 kg

DRUGS (2)
  1. CORICIDIN [Suspect]
     Active Substance: ACETAMINOPHEN\CHLORPHENIRAMINE MALEATE
     Indication: PRODUCT USED FOR UNKNOWN INDICATION
     Dosage: CORICIDIN HBP COUGH AND COLD TABLET
  2. ALEVE [Suspect]
     Active Substance: NAPROXEN SODIUM
     Indication: PAIN
     Dosage: 1/TWICE IN A DAY/AS NEEDED
     Route: 048

REACTIONS (1)
  - Urticaria [Recovered/Resolved]
